FAERS Safety Report 22637321 (Version 1)
Quarter: 2023Q2

REPORT INFORMATION
  Report Type: Spontaneous
  Country: GR (occurrence: GR)
  Receive Date: 20230626
  Receipt Date: 20230626
  Transmission Date: 20230722
  Serious: Yes (Hospitalization, Other)
  Sender: FDA-Public Use
  Company Number: GR-009507513-2306GRC010435

PATIENT
  Sex: Male

DRUGS (2)
  1. KEYTRUDA [Suspect]
     Active Substance: PEMBROLIZUMAB
     Indication: Laryngeal cancer
     Dosage: UNK
  2. KEYTRUDA [Suspect]
     Active Substance: PEMBROLIZUMAB
     Dosage: UNK
     Dates: start: 202209

REACTIONS (6)
  - Muscular weakness [Unknown]
  - Encephalitis [Unknown]
  - Panencephalitis [Unknown]
  - Gait inability [Recovered/Resolved]
  - Urinary incontinence [Unknown]
  - Laryngeal cancer recurrent [Unknown]

NARRATIVE: CASE EVENT DATE: 20230321
